FAERS Safety Report 5572800-6 (Version None)
Quarter: 2007Q4

REPORT INFORMATION
  Report Type: 
  Country: None (occurrence: None)
  Receive Date: 20071223
  Receipt Date: 20071213
  Transmission Date: 20080405
  Serious: Yes (Other)
  Sender: FDA-Public Use
  Company Number: PHBS2007TR20955

PATIENT

DRUGS (1)
  1. IMATINIB [Suspect]
     Route: 064

REACTIONS (2)
  - CHROMOSOME ANALYSIS ABNORMAL [None]
  - DRUG EXPOSURE DURING PREGNANCY [None]
